FAERS Safety Report 7434972-8 (Version None)
Quarter: 2011Q2

REPORT INFORMATION
  Report Type: 
  Country: None (occurrence: None)
  Receive Date: 20110425
  Receipt Date: 20110421
  Transmission Date: 20111010
  Serious: Yes (Hospitalization)
  Sender: FDA-Public Use
  Company Number: FR-ROCHE-773011

PATIENT
  Age: 30 Year
  Sex: Male

DRUGS (5)
  1. CLOZAPINE [Suspect]
     Indication: SCHIZOPHRENIA
     Route: 048
     Dates: start: 20090527
  2. LEPTICUR [Suspect]
     Indication: SCHIZOPHRENIA
     Dosage: DOSE: 1 DF.
     Route: 048
     Dates: start: 20090527
  3. TRIMEPRAZINE TARTRATE [Suspect]
     Indication: SCHIZOPHRENIA
     Route: 048
     Dates: start: 20090527
  4. NOZINAN [Suspect]
     Indication: SCHIZOPHRENIA
     Route: 048
     Dates: start: 20090527
  5. RIVOTRIL [Suspect]
     Indication: SCHIZOPHRENIA
     Dosage: DOSE REPORTED AS 1 DF.
     Route: 048
     Dates: start: 20090527

REACTIONS (1)
  - FAECALOMA [None]
